FAERS Safety Report 12871693 (Version 4)
Quarter: 2017Q1

REPORT INFORMATION
  Report Type: Spontaneous
  Country: US (occurrence: US)
  Receive Date: 20161021
  Receipt Date: 20170111
  Transmission Date: 20170428
  Serious: Yes (Other)
  Sender: FDA-Public Use
  Company Number: US-JNJFOC-20160913100

PATIENT
  Age: 58 Year
  Sex: Female
  Weight: 68.04 kg

DRUGS (5)
  1. SIMPONI [Suspect]
     Active Substance: GOLIMUMAB
     Indication: COLITIS ULCERATIVE
     Dosage: DRUG STARTED IN FEBRUARY OR MARCH IN 2015
     Route: 058
     Dates: start: 2014
  2. VITAMIN D3 [Concomitant]
     Active Substance: CHOLECALCIFEROL
     Dosage: 3000.0
     Route: 048
  3. SIMPONI [Suspect]
     Active Substance: GOLIMUMAB
     Indication: COLITIS ULCERATIVE
     Dosage: IN FEBRUARY OR MARCH IN 2015
     Route: 058
     Dates: start: 2015
  4. LIPITOR [Concomitant]
     Active Substance: ATORVASTATIN CALCIUM
     Indication: BLOOD CHOLESTEROL
     Route: 065
  5. NEXIUM [Concomitant]
     Active Substance: ESOMEPRAZOLE MAGNESIUM
     Indication: GASTROOESOPHAGEAL REFLUX DISEASE
     Route: 065

REACTIONS (9)
  - Drug dose omission [Unknown]
  - Diarrhoea [Not Recovered/Not Resolved]
  - Underdose [Not Recovered/Not Resolved]
  - Haematochezia [Not Recovered/Not Resolved]
  - Device malfunction [Unknown]
  - Device malfunction [Unknown]
  - Mucous stools [Not Recovered/Not Resolved]
  - Injection site pain [Unknown]
  - Product packaging issue [Unknown]

NARRATIVE: CASE EVENT DATE: 20160912
